FAERS Safety Report 13977714 (Version 3)
Quarter: 2017Q4

REPORT INFORMATION
  Report Type: Spontaneous
  Country: US (occurrence: US)
  Receive Date: 20170915
  Receipt Date: 20171116
  Transmission Date: 20180321
  Serious: Yes (Hospitalization, Other)
  Sender: FDA-Public Use
  Company Number: US-009507513-1709USA004204

PATIENT
  Age: 61 Year
  Sex: Female

DRUGS (10)
  1. OMEPRAZOLE. [Concomitant]
     Active Substance: OMEPRAZOLE
  2. THIAMINE. [Concomitant]
     Active Substance: THIAMINE
  3. CALCIUM CARBONATE. [Concomitant]
     Active Substance: CALCIUM CARBONATE
  4. FOLIC ACID. [Concomitant]
     Active Substance: FOLIC ACID
  5. PROBIOTICS (UNSPECIFIED) [Concomitant]
     Active Substance: PROBIOTICS NOS
  6. VITAMINS (UNSPECIFIED) [Concomitant]
     Active Substance: VITAMINS
  7. CEFTRIAXONE. [Concomitant]
     Active Substance: CEFTRIAXONE
  8. LACTULOSE. [Concomitant]
     Active Substance: LACTULOSE
  9. STERILE DILUENT [Suspect]
     Active Substance: WATER
     Dosage: UNK
     Dates: start: 20170731
  10. VARIVAX [Suspect]
     Active Substance: VARICELLA-ZOSTER VIRUS STRAIN OKA/MERCK LIVE ANTIGEN
     Indication: PROPHYLAXIS
     Dates: start: 20170731, end: 20170731

REACTIONS (2)
  - Adverse event [Not Recovered/Not Resolved]
  - Disseminated varicella zoster vaccine virus infection [Recovered/Resolved]

NARRATIVE: CASE EVENT DATE: 2017
